FAERS Safety Report 7912642-7 (Version None)
Quarter: 2011Q4

REPORT INFORMATION
  Report Type: 
  Country: None (occurrence: None)
  Receive Date: 20111114
  Receipt Date: 20111108
  Transmission Date: 20120403
  Serious: Yes (Other)
  Sender: FDA-Public Use
  Company Number: US-PFIZER INC-2011222650

PATIENT
  Sex: Female
  Weight: 81.63 kg

DRUGS (8)
  1. PRAVASTATIN SODIUM [Concomitant]
     Indication: BLOOD CHOLESTEROL ABNORMAL
     Dosage: 10 MG, DAILY
  2. ULTRAM [Concomitant]
     Dosage: UNK
  3. FLEXERIL [Concomitant]
     Indication: FIBROMYALGIA
     Dosage: 10 MG, 3X/DAY
  4. ULTRAM ER [Concomitant]
     Indication: FIBROMYALGIA
     Dosage: 300 MG, DAILY
  5. AMBIEN [Concomitant]
     Indication: SLEEP DISORDER
     Dosage: 10 MG, AS NEEDED
  6. HYDROCODONE [Concomitant]
     Indication: FIBROMYALGIA
     Dosage: 7.5 MG, EVERY 4 HRS
     Route: 048
  7. LYRICA [Suspect]
     Indication: FIBROMYALGIA
     Dosage: 150 MG, 3X/DAY
     Route: 048
  8. LYRICA [Suspect]
     Dosage: 300 MG, 2X/DAY
     Route: 048

REACTIONS (2)
  - HEART RATE IRREGULAR [None]
  - DRUG DISPENSING ERROR [None]
